FAERS Safety Report 8832638 (Version 1)
Quarter: 2012Q4

REPORT INFORMATION
  Report Type: 
  Country: US (occurrence: US)
  Receive Date: 20121010
  Receipt Date: 20121010
  Transmission Date: 20130627
  Serious: No
  Sender: FDA-Public Use
  Company Number: US-PFIZER INC-2012247823

PATIENT
  Age: 41 Year
  Sex: Female

DRUGS (1)
  1. ZITHROMAX [Suspect]
     Indication: SINUSITIS
     Dosage: UNK
     Dates: start: 20120928, end: 20121001

REACTIONS (1)
  - Palpitations [Recovered/Resolved]
